FAERS Safety Report 21473144 (Version 1)
Quarter: 2022Q4

REPORT INFORMATION
  Report Type: Spontaneous
  Country: US (occurrence: None)
  Receive Date: 20221018
  Receipt Date: 20221018
  Transmission Date: 20230113
  Serious: No
  Sender: FDA-Public Use
  Company Number: 2022A323677

PATIENT
  Sex: Female
  Weight: 49.9 kg

DRUGS (1)
  1. BUDESONIDE\FORMOTEROL [Suspect]
     Active Substance: BUDESONIDE\FORMOTEROL
     Indication: Asthma
     Dosage: 160/4.5 MCG, 2 INHALATIONS 2 TIMES A DAY
     Route: 055
     Dates: start: 2019

REACTIONS (4)
  - Fungal infection [Not Recovered/Not Resolved]
  - Product prescribing error [Unknown]
  - Device use issue [Unknown]
  - Device delivery system issue [Unknown]
